FAERS Safety Report 23060964 (Version 1)
Quarter: 2023Q4

REPORT INFORMATION
  Report Type: Report from Study
  Country: GB (occurrence: GB)
  Receive Date: 20231012
  Receipt Date: 20231012
  Transmission Date: 20240110
  Serious: Yes (Death)
  Sender: FDA-Public Use
  Company Number: GB-CELLTRION INC.-2023GB019617

PATIENT

DRUGS (17)
  1. BEVACIZUMAB [Suspect]
     Active Substance: BEVACIZUMAB
     Indication: Hepatocellular carcinoma
     Dosage: 900 MILLIGRAM
     Route: 065
     Dates: start: 20211103
  2. ATEZOLIZUMAB [Suspect]
     Active Substance: ATEZOLIZUMAB
     Indication: Hepatocellular carcinoma
     Dosage: 1200 MILLIGRAM
     Route: 042
     Dates: start: 20211103
  3. AMITRIPTYLINE [Concomitant]
     Active Substance: AMITRIPTYLINE
     Dosage: 25 MILLIGRAM, EVERY 2 DAYS
     Dates: start: 2018
  4. ATENOLOL [Concomitant]
     Active Substance: ATENOLOL
     Dosage: 50 MILLIGRAM, QD
     Dates: start: 2016
  5. CANDESARTAN [Concomitant]
     Active Substance: CANDESARTAN
     Dosage: 8 MILLIGRAM, QD (SUBSEQUENT DOSE ON 12-MAY-2022)
     Dates: start: 20211115
  6. DEXAMETHASONE [Concomitant]
     Active Substance: DEXAMETHASONE
     Dosage: SUBSEQUENT DOSE ON18-MAY-2022; ;
     Dates: start: 20220512, end: 20220517
  7. GABAPENTIN [Concomitant]
     Active Substance: GABAPENTIN
     Dosage: 100 MILLIGRAM EVERY 0.33 DAY
     Dates: start: 20210601
  8. LANSOPRAZOLE [Concomitant]
     Active Substance: LANSOPRAZOLE
     Dosage: 30 MILLIGRAM EVERY 0.5 DAY
     Dates: start: 20211025
  9. LERCANIDIPINE [Concomitant]
     Active Substance: LERCANIDIPINE
  10. LIDOCAINE [Concomitant]
     Active Substance: LIDOCAINE
     Dosage: 10 MILLIGRAM, QD (10MG/NASAL SPRAY)
     Dates: start: 2020
  11. OXYCODONE [Concomitant]
     Active Substance: OXYCODONE
     Dosage: 5MG/ML; EVERY 0.5 DAY
     Dates: start: 20201101
  12. ACETAMINOPHEN [Concomitant]
     Active Substance: ACETAMINOPHEN
     Dosage: 500 MILLIGRAM
     Dates: start: 20210727
  13. RALTEGRAVIR [Concomitant]
     Active Substance: RALTEGRAVIR
     Dosage: 400 MILLIGRAM, EVERY 2 DAYS
     Dates: start: 20170620
  14. TAMSULOSIN [Concomitant]
     Active Substance: TAMSULOSIN
     Dosage: 400MCG; ;
     Dates: start: 20211014
  15. TRUVADA [Concomitant]
     Active Substance: EMTRICITABINE\TENOFOVIR DISOPROXIL FUMARATE
     Dosage: 200 MILLIGRAM, QD
     Dates: start: 20170620
  16. TRUVADA [Concomitant]
     Active Substance: EMTRICITABINE\TENOFOVIR DISOPROXIL FUMARATE
     Dosage: 250 MILLIGRAM, QD
     Dates: start: 20170620
  17. VANCOMYCIN [Concomitant]
     Active Substance: VANCOMYCIN
     Dosage: UNK
     Dates: start: 20220511, end: 20220512

REACTIONS (3)
  - Death [Fatal]
  - Hypertension [Not Recovered/Not Resolved]
  - Intentional product use issue [Unknown]

NARRATIVE: CASE EVENT DATE: 20211214
